FAERS Safety Report 13935301 (Version 1)
Quarter: 2017Q3

REPORT INFORMATION
  Report Type: Spontaneous
  Country: US (occurrence: US)
  Receive Date: 20170901
  Receipt Date: 20170901
  Transmission Date: 20171127
  Serious: No
  Sender: FDA-Public Use
  Company Number: None

PATIENT
  Age: 60 Year
  Sex: Female
  Weight: 56.25 kg

DRUGS (7)
  1. ACETAMINOPHEN. [Concomitant]
     Active Substance: ACETAMINOPHEN
  2. OCUVITE [Concomitant]
     Active Substance: VITAMINS
  3. VSL#3 PROBIOTIC [Concomitant]
  4. ALENDRONATE [Concomitant]
     Active Substance: ALENDRONATE SODIUM
  5. BUDESONIDE DR - ER 3 MG CAPSULES, DELAYED EXTENDED RELEASE= [Suspect]
     Active Substance: BUDESONIDE
     Indication: COLITIS MICROSCOPIC
     Dosage: ?          QUANTITY:3 CAPSULE(S);?
     Route: 048
     Dates: start: 20170824, end: 20170831
  6. CALCIUM CITRATE WITH MAGNESIUM AND ZINC [Concomitant]
  7. DIPHENHYDRAMINE HYDROCHLORIDE. [Concomitant]
     Active Substance: DIPHENHYDRAMINE HYDROCHLORIDE

REACTIONS (5)
  - Chapped lips [None]
  - Swelling face [None]
  - Pruritus [None]
  - Lip exfoliation [None]
  - Burning sensation [None]

NARRATIVE: CASE EVENT DATE: 20170830
